FAERS Safety Report 6716876-9 (Version None)
Quarter: 2010Q2

REPORT INFORMATION
  Report Type: 
  Country: None (occurrence: None)
  Receive Date: 20100510
  Receipt Date: 20100429
  Transmission Date: 20101027
  Serious: Yes (Hospitalization)
  Sender: FDA-Public Use
  Company Number: FR-BRACCO-000342

PATIENT
  Age: 73 Year
  Sex: Female

DRUGS (9)
  1. IOPAMIDOL [Suspect]
     Indication: ARTHROGRAM
     Route: 014
     Dates: start: 20091008, end: 20091008
  2. CALCIUM D3 [Concomitant]
     Dosage: MORNING
     Route: 048
     Dates: start: 20010101
  3. ACTONEL [Concomitant]
     Route: 048
     Dates: start: 20010101, end: 20091105
  4. DAFALGAN [Concomitant]
     Dosage: IF NEEDED
     Route: 048
     Dates: start: 20050101, end: 20091105
  5. ZOLPIDEM [Concomitant]
     Dosage: BEFORE SLEEPING
     Route: 048
     Dates: start: 20030101
  6. EFFEXOR [Concomitant]
     Dosage: MORNING
     Route: 048
     Dates: start: 20090801
  7. IRBESARTAN [Concomitant]
     Dosage: MORNING
     Route: 048
     Dates: start: 20000101
  8. HYDROCORTANCYL [Concomitant]
     Route: 065
     Dates: start: 20091008, end: 20091008
  9. CONTRAMAL [Concomitant]
     Route: 048
     Dates: start: 20030101, end: 20091105

REACTIONS (2)
  - ACUTE FEBRILE NEUTROPHILIC DERMATOSIS [None]
  - URTICARIA [None]
